FAERS Safety Report 4433216-9 (Version None)
Quarter: 2004Q3

REPORT INFORMATION
  Report Type: 
  Country: None (occurrence: None)
  Receive Date: 20040823
  Receipt Date: 20040816
  Transmission Date: 20050211
  Serious: No
  Sender: FDA-Public Use
  Company Number: 2004-119490-NL

PATIENT
  Age: 28 Year
  Sex: Female

DRUGS (17)
  1. MIRTAZAPINE [Suspect]
     Dosage: 30 MG
     Route: 048
  2. NAPROXEN [Concomitant]
  3. OTOSPORIN [Concomitant]
  4. IBUPROFEN [Concomitant]
  5. ZOLPIDEM TARTRATE [Concomitant]
  6. RANITIDINE [Concomitant]
  7. ADCAL-03 [Concomitant]
  8. OTOMITE [Concomitant]
  9. CO-AMIXICLAV [Concomitant]
  10. CIPROFLOXACIN [Concomitant]
  11. ALBUTEROL SULFATE [Concomitant]
  12. AZATHIOPRINE [Concomitant]
  13. COLCHICINE [Concomitant]
  14. PREDNISOLONE [Concomitant]
  15. VALDECOXIB [Concomitant]
  16. VENLAFAXINE HCL [Concomitant]
  17. DICLOFENAC [Concomitant]

REACTIONS (2)
  - BEHCET'S SYNDROME [None]
  - CONDITION AGGRAVATED [None]
